FAERS Safety Report 5757156-8 (Version None)
Quarter: 2008Q2

REPORT INFORMATION
  Report Type: 
  Country: None (occurrence: None)
  Receive Date: 20080603
  Receipt Date: 20080523
  Transmission Date: 20081010
  Serious: Yes (Hospitalization)
  Sender: FDA-Public Use
  Company Number: US-JNJFOC-20080505247

PATIENT

DRUGS (2)
  1. ACETAMINOPHEN [Suspect]
  2. ACETAMINOPHEN [Suspect]
     Indication: DRUG EXPOSURE DURING PREGNANCY

REACTIONS (2)
  - FOETAL DISTRESS SYNDROME [None]
  - PREMATURE LABOUR [None]
